FAERS Safety Report 5966795-0 (Version None)
Quarter: 2008Q4

REPORT INFORMATION
  Report Type: 
  Country: None (occurrence: None)
  Receive Date: 20081125
  Receipt Date: 20081020
  Transmission Date: 20090506
  Serious: No
  Sender: FDA-Public Use
  Company Number: US-B.I. PHARMACEUTICALS,INC./RIDGEFIELD-2008-BP-15269BP

PATIENT
  Age: 66 Year
  Sex: Female

DRUGS (5)
  1. SPIRIVA [Suspect]
     Indication: CHRONIC OBSTRUCTIVE PULMONARY DISEASE
     Dosage: 18MCG
     Route: 055
     Dates: start: 20080911
  2. NORVASC [Concomitant]
  3. ZOCOR [Concomitant]
  4. AMBIEN [Concomitant]
  5. ASPIRIN [Concomitant]

REACTIONS (2)
  - NIGHT BLINDNESS [None]
  - VISUAL IMPAIRMENT [None]
